FAERS Safety Report 13314015 (Version 2)
Quarter: 2017Q2

REPORT INFORMATION
  Report Type: Spontaneous
  Country: US (occurrence: US)
  Receive Date: 20170309
  Receipt Date: 20170427
  Transmission Date: 20170830
  Serious: Yes (Hospitalization)
  Sender: FDA-Public Use
  Company Number: US-JNJFOC-20170308302

PATIENT
  Sex: Female
  Weight: 77.11 kg

DRUGS (2)
  1. INVEGA SUSTENNA [Suspect]
     Active Substance: PALIPERIDONE PALMITATE
     Indication: SCHIZOPHRENIA
     Route: 030
     Dates: start: 2016
  2. RISPERDAL CONSTA [Suspect]
     Active Substance: RISPERIDONE
     Indication: SCHIZOPHRENIA
     Route: 030
     Dates: start: 2010, end: 2016

REACTIONS (9)
  - Depression [Not Recovered/Not Resolved]
  - Inappropriate schedule of drug administration [Unknown]
  - Rathke^s cleft cyst [Unknown]
  - Appendicitis [Not Recovered/Not Resolved]
  - Breast mass [Unknown]
  - Off label use [Unknown]
  - Liver disorder [Unknown]
  - Drug ineffective [Unknown]
  - Gallbladder disorder [Not Recovered/Not Resolved]

NARRATIVE: CASE EVENT DATE: 2010
